FAERS Safety Report 15020854 (Version 1)
Quarter: 2018Q2

REPORT INFORMATION
  Report Type: Spontaneous
  Country: US (occurrence: US)
  Receive Date: 20180524
  Receipt Date: 20180524
  Transmission Date: 20180711
  Serious: Yes (Disabling, Other)
  Sender: FDA-Public Use
  Company Number: None

PATIENT
  Age: 55 Year
  Sex: Female
  Weight: 67.6 kg

DRUGS (1)
  1. RECLAST [Suspect]
     Active Substance: ZOLEDRONIC ACID
     Indication: OSTEOPOROSIS
     Route: 042
     Dates: start: 20180411

REACTIONS (12)
  - Muscle spasms [None]
  - Back pain [None]
  - Bedridden [None]
  - Meniscus injury [None]
  - Walking aid user [None]
  - Infusion related reaction [None]
  - Dizziness [None]
  - Loss of consciousness [None]
  - Chills [None]
  - Joint effusion [None]
  - Joint stiffness [None]
  - Retching [None]

NARRATIVE: CASE EVENT DATE: 20180411
